FAERS Safety Report 9251608 (Version 1)
Quarter: 2013Q1

REPORT INFORMATION
  Report Type: Spontaneous
  Country: US (occurrence: None)
  Receive Date: 20130305
  Receipt Date: 20130305
  Transmission Date: 20140127
  Serious: Yes (Other)
  Sender: FDA-Public Use
  Company Number: 163-21880-12090813

PATIENT
  Age: 68 Year
  Sex: Male
  Weight: 131.54 kg

DRUGS (15)
  1. REVLIMID [Suspect]
     Indication: PLASMA CELL MYELOMA
     Dosage: 21 IN 28 D
     Route: 048
     Dates: start: 201203, end: 201203
  2. HYTRIN (TERAZOSIN HYDROCHLORIDE) [Concomitant]
  3. LIPITOR (ATORVASTATIN) [Concomitant]
  4. HYZAAR (HYZAAR) [Concomitant]
  5. ACTOS (PIOGLITAZONE) [Concomitant]
  6. GLIMEPIRIDE (GLIMEPIRIDE) [Concomitant]
  7. VICTOZA (LIRAGLUTID) [Concomitant]
  8. CLONAZEPAM (CLONAZEPAM) (CLONAZEPAM) [Concomitant]
  9. NITROGLYCERIN (GLYCERYL TRINITRATE) [Concomitant]
  10. PLAVIX (CLOPIDOGREL SULFATE) [Concomitant]
  11. VELCADE (BORTEZOMIB) [Concomitant]
  12. CENTRUM (CENTRUM) [Concomitant]
  13. CALTRATE (LEKOVIT CA) [Concomitant]
  14. FOLIC ACID (FOLIC ACID) [Concomitant]
  15. PREDNISONE (PREDNISONE) [Concomitant]

REACTIONS (2)
  - Haemoglobin decreased [None]
  - Local swelling [None]
